FAERS Safety Report 17448125 (Version 2)
Quarter: 2020Q1

REPORT INFORMATION
  Report Type: Report from Study
  Country: None (occurrence: CO)
  Receive Date: 20200222
  Receipt Date: 20200224
  Transmission Date: 20200409
  Serious: Yes (Other)
  Sender: FDA-Public Use
  Company Number: CO-ABBVIE-20K-036-3289465-00

PATIENT
  Sex: Male
  Weight: 62 kg

DRUGS (1)
  1. ZEMPLAR [Suspect]
     Active Substance: PARICALCITOL
     Indication: HYPERPARATHYROIDISM SECONDARY
     Dosage: POST DIALYSIS
     Route: 042
     Dates: start: 20140328

REACTIONS (3)
  - Blindness [Recovering/Resolving]
  - Surgery [Recovering/Resolving]
  - Diabetic blindness [Not Recovered/Not Resolved]

NARRATIVE: CASE EVENT DATE: 2017
